FAERS Safety Report 7065410-5 (Version None)
Quarter: 2010Q4

REPORT INFORMATION
  Report Type: 
  Country: None (occurrence: None)
  Receive Date: 20101027
  Receipt Date: 20101020
  Transmission Date: 20110411
  Serious: Yes (Hospitalization)
  Sender: FDA-Public Use
  Company Number: KR-ROCHE-721605

PATIENT
  Age: 33 Year
  Sex: Female

DRUGS (3)
  1. RIBAVIRIN [Suspect]
     Route: 048
  2. PEGINTERFERON ALFA-2B [Suspect]
     Dosage: DOSAGE;1.5 UG/KG X 53KG
     Route: 058
  3. PEGINTERFERON ALFA-2B [Suspect]
     Route: 058

REACTIONS (2)
  - AUTOIMMUNE THYROIDITIS [None]
  - DIABETIC KETOACIDOSIS [None]
